FAERS Safety Report 4514428-2 (Version None)
Quarter: 2004Q4

REPORT INFORMATION
  Report Type: 
  Country: None (occurrence: None)
  Receive Date: 20041126
  Receipt Date: 20041116
  Transmission Date: 20050328
  Serious: Yes (Hospitalization)
  Sender: FDA-Public Use
  Company Number: 210484

PATIENT
  Age: 62 Year
  Sex: Female

DRUGS (1)
  1. HERCEPTIN [Suspect]
     Dosage: INTRAVENOUS
     Route: 042

REACTIONS (2)
  - CRYPTOGENIC ORGANIZING PNEUMONIA [None]
  - LUNG INFILTRATION [None]
